FAERS Safety Report 11050470 (Version 1)
Quarter: 2015Q2

REPORT INFORMATION
  Report Type: Spontaneous
  Country: US (occurrence: US)
  Receive Date: 20150421
  Receipt Date: 20150421
  Transmission Date: 20150821
  Serious: No
  Sender: FDA-Public Use
  Company Number: US-BAYER-2015-156429

PATIENT
  Age: 75 Year
  Sex: Female
  Weight: 100 kg

DRUGS (2)
  1. ALEVE [Suspect]
     Active Substance: NAPROXEN SODIUM
     Indication: ARTHRALGIA
     Dosage: 1 DF, ONCE
     Route: 048
     Dates: start: 20150415, end: 20150415
  2. VITAMIN D [COLECALCIFEROL] [Concomitant]

REACTIONS (1)
  - Insomnia [Unknown]

NARRATIVE: CASE EVENT DATE: 20150415
